FAERS Safety Report 23607374 (Version 1)
Quarter: 2024Q1

REPORT INFORMATION
  Report Type: Spontaneous
  Country: IT (occurrence: IT)
  Receive Date: 20240307
  Receipt Date: 20240307
  Transmission Date: 20240409
  Serious: Yes (Hospitalization)
  Sender: FDA-Public Use
  Company Number: IT-002147023-PHHY2018IT076151

PATIENT
  Age: 42 Year
  Sex: Male

DRUGS (4)
  1. AZILECT [Suspect]
     Active Substance: RASAGILINE MESYLATE
     Indication: Parkinson^s disease
     Dosage: 1 DF, QD
     Route: 065
     Dates: start: 20080101, end: 20180919
  2. BENSERAZIDE HYDROCHLORIDE\LEVODOPA [Suspect]
     Active Substance: BENSERAZIDE HYDROCHLORIDE\LEVODOPA
     Indication: Parkinson^s disease
     Dosage: 3 DF, QD
     Route: 065
     Dates: start: 20120101, end: 20180919
  3. STALEVO [Suspect]
     Active Substance: CARBIDOPA\ENTACAPONE\LEVODOPA
     Indication: Parkinson^s disease
     Dosage: 5 DF, QD (ABUSE/MISUSE)
     Route: 065
     Dates: start: 20120101, end: 20180919
  4. PREGABALIN [Concomitant]
     Active Substance: PREGABALIN
     Indication: Product used for unknown indication
     Dosage: UNK
     Route: 065

REACTIONS (5)
  - Drug abuse [Recovering/Resolving]
  - Dopamine dysregulation syndrome [Recovering/Resolving]
  - Gambling disorder [Recovering/Resolving]
  - Delusional disorder, persecutory type [Recovering/Resolving]
  - Psychotic disorder [Recovering/Resolving]

NARRATIVE: CASE EVENT DATE: 20180221
